FAERS Safety Report 6406081-8 (Version None)
Quarter: 2009Q4

REPORT INFORMATION
  Report Type: 
  Country: None (occurrence: None)
  Receive Date: 20091016
  Receipt Date: 20091016
  Transmission Date: 20100525
  Serious: Yes (Life-Threatening)
  Sender: FDA-Public Use
  Company Number: None

PATIENT
  Age: 10 Year
  Sex: Male
  Weight: 27.2158 kg

DRUGS (2)
  1. SINGULAIR [Suspect]
     Indication: ASTHMA
     Dosage: 5MG 1X DAY PO
     Route: 048
     Dates: start: 20031003, end: 20071027
  2. SINGULAIR [Suspect]
     Indication: HYPERSENSITIVITY
     Dosage: 5MG 1X DAY PO
     Route: 048
     Dates: start: 20031003, end: 20071027

REACTIONS (1)
  - SUICIDE ATTEMPT [None]
